FAERS Safety Report 4876562-7 (Version None)
Quarter: 2005Q4

REPORT INFORMATION
  Report Type: 
  Country: None (occurrence: None)
  Receive Date: 20051206
  Receipt Date: 20050920
  Transmission Date: 20060501
  Serious: No
  Sender: FDA-Public Use
  Company Number: USA0506101493

PATIENT
  Age: 62 Year
  Sex: Female
  Weight: 64 kg

DRUGS (5)
  1. CYMBALTA [Suspect]
     Indication: NEUROPATHY PERIPHERAL
     Dosage: 120 MG DAY
     Dates: start: 20050101, end: 20050101
  2. AMBIEN [Concomitant]
  3. NEURONTIN [Concomitant]
  4. KLONOPIN [Concomitant]
  5. PAXIL [Concomitant]

REACTIONS (2)
  - DRUG INEFFECTIVE [None]
  - THROAT TIGHTNESS [None]
